FAERS Safety Report 16798657 (Version 3)
Quarter: 2020Q3

REPORT INFORMATION
  Report Type: Spontaneous
  Country: US (occurrence: US)
  Receive Date: 20190912
  Receipt Date: 20200923
  Transmission Date: 20201102
  Serious: Yes (Hospitalization, Other)
  Sender: FDA-Public Use
  Company Number: US-SA-2019SA252773

PATIENT

DRUGS (51)
  1. DUPIXENT [Suspect]
     Active Substance: DUPILUMAB
     Indication: HYPOGAMMAGLOBULINAEMIA
     Dosage: 300 MG, QOW
     Route: 058
  2. TAMSULOSIN HCL [Concomitant]
     Active Substance: TAMSULOSIN HYDROCHLORIDE
  3. ZYRTEC?D [Concomitant]
     Active Substance: CETIRIZINE HYDROCHLORIDE\PSEUDOEPHEDRINE HYDROCHLORIDE
     Dosage: 5 MG?120MG TAB.SR 12H
  4. SINGULAIR [Concomitant]
     Active Substance: MONTELUKAST SODIUM
  5. SOLU?MEDROL [Concomitant]
     Active Substance: METHYLPREDNISOLONE SODIUM SUCCINATE
  6. DIGOXIN. [Concomitant]
     Active Substance: DIGOXIN
  7. ACETAMINOPHEN. [Concomitant]
     Active Substance: ACETAMINOPHEN
  8. DIPHENHYDRAMINE. [Concomitant]
     Active Substance: DIPHENHYDRAMINE
  9. VITAMIN C [Concomitant]
     Active Substance: ASCORBIC ACID
  10. CEFUROXIME. [Concomitant]
     Active Substance: CEFUROXIME
  11. XOPENEX [Concomitant]
     Active Substance: LEVALBUTEROL HYDROCHLORIDE
  12. LANSOPRAZOLE. [Concomitant]
     Active Substance: LANSOPRAZOLE
  13. LIDOCAIN [LIDOCAINE] [Concomitant]
     Active Substance: LIDOCAINE
  14. HYDROCODONE/ACETAMINOPHEN [Concomitant]
     Active Substance: ACETAMINOPHEN\HYDROCODONE
  15. MAGNESIUM [Concomitant]
     Active Substance: MAGNESIUM
  16. SPIRIVA RESPIMAT [Concomitant]
     Active Substance: TIOTROPIUM BROMIDE
     Route: 055
  17. LASIX [Concomitant]
     Active Substance: FUROSEMIDE
  18. ROBAXIN?750 [Concomitant]
     Active Substance: METHOCARBAMOL
  19. CORLANOR [Concomitant]
     Active Substance: IVABRADINE HYDROCHLORIDE
  20. UROCIT?K [Concomitant]
     Active Substance: POTASSIUM CITRATE
  21. PANTOPRAZOLE SODIUM. [Concomitant]
     Active Substance: PANTOPRAZOLE SODIUM
  22. PRIVIGEN [Concomitant]
     Active Substance: HUMAN IMMUNOGLOBULIN G
  23. VERAPAMIL [Concomitant]
     Active Substance: VERAPAMIL HYDROCHLORIDE
  24. SOLU?MEDROL [Concomitant]
     Active Substance: METHYLPREDNISOLONE SODIUM SUCCINATE
  25. XOLAIR [Concomitant]
     Active Substance: OMALIZUMAB
  26. ZETIA [Concomitant]
     Active Substance: EZETIMIBE
  27. XYZAL [Concomitant]
     Active Substance: LEVOCETIRIZINE DIHYDROCHLORIDE
  28. BROVANA [Concomitant]
     Active Substance: ARFORMOTEROL TARTRATE
  29. SPIRIVA [Concomitant]
     Active Substance: TIOTROPIUM BROMIDE MONOHYDRATE
  30. LEVALBUTEROL [LEVOSALBUTAMOL] [Concomitant]
     Active Substance: LEVALBUTEROL
  31. LISINOPRIL [LISINOPRIL DIHYDRATE] [Concomitant]
  32. DIGOXIN [BETA?ACETYLDIGOXIN] [Concomitant]
  33. INCRUSE ELLIPTA [Concomitant]
     Active Substance: UMECLIDINIUM BROMIDE
  34. SENIOR [Concomitant]
     Dosage: 4?300?250 TABLET
  35. DUPIXENT [Suspect]
     Active Substance: DUPILUMAB
     Indication: ASTHMA
  36. EPINEPHRINE. [Concomitant]
     Active Substance: EPINEPHRINE
  37. SODIUM CHLORIDE. [Concomitant]
     Active Substance: SODIUM CHLORIDE
  38. ANDROGEL [Concomitant]
     Active Substance: TESTOSTERONE
     Dosage: 20.25/1.25 GEL MD PMP
  39. SODIUM CHLORIDE. [Concomitant]
     Active Substance: SODIUM CHLORIDE
  40. MOBIC [Concomitant]
     Active Substance: MELOXICAM
  41. SPIRONOLACTONE. [Concomitant]
     Active Substance: SPIRONOLACTONE
  42. PROBIOTIC [BIFIDOBACTERIUM LACTIS] [Concomitant]
     Active Substance: BIFIDOBACTERIUM ANIMALIS LACTIS
     Dosage: 100B CELL CAPSULE
  43. LIDOCAINE. [Concomitant]
     Active Substance: LIDOCAINE
  44. PROVENTIL HFA [SALBUTAMOL] [Concomitant]
  45. CIALIS [Concomitant]
     Active Substance: TADALAFIL
  46. CHLORTHALIDONE. [Concomitant]
     Active Substance: CHLORTHALIDONE
  47. DIPHENHYDRAMINE HYDROCHLORIDE. [Concomitant]
     Active Substance: DIPHENHYDRAMINE HYDROCHLORIDE
  48. BREO ELLIPTA [Concomitant]
     Active Substance: FLUTICASONE FUROATE\VILANTEROL TRIFENATATE
     Dosage: 200?25 MCG BLST W/DEV
  49. STERILE WATER [Concomitant]
     Active Substance: WATER
  50. TESTOSTERONE. [Concomitant]
     Active Substance: TESTOSTERONE
  51. ACETAMINOPHEN;DIPHENHYDRAMINE HYDROCHLORIDE [Concomitant]
     Active Substance: ACETAMINOPHEN\DIPHENHYDRAMINE HYDROCHLORIDE

REACTIONS (8)
  - Product use in unapproved indication [Unknown]
  - Infusion related reaction [Unknown]
  - COVID-19 [Recovered/Resolved]
  - Myocardial infarction [Unknown]
  - Cardiac disorder [Unknown]
  - Pneumonia [Unknown]
  - SARS-CoV-2 test positive [Recovered/Resolved]
  - Tachycardia [Unknown]
